FAERS Safety Report 5026718-8 (Version None)
Quarter: 2006Q2

REPORT INFORMATION
  Report Type: 
  Country: None (occurrence: None)
  Receive Date: 20060615
  Receipt Date: 20060608
  Transmission Date: 20061013
  Serious: Yes (Other)
  Sender: FDA-Public Use
  Company Number: CA-JNJFOC-20060403557

PATIENT
  Sex: Female
  Weight: 59.3 kg

DRUGS (1)
  1. REMICADE [Suspect]
     Indication: RHEUMATOID ARTHRITIS
     Route: 042

REACTIONS (12)
  - BODY TEMPERATURE INCREASED [None]
  - BRONCHOSPASM [None]
  - CHILLS [None]
  - DYSPNOEA [None]
  - ERYTHEMA [None]
  - HYPOAESTHESIA ORAL [None]
  - INFUSION RELATED REACTION [None]
  - OXYGEN SATURATION DECREASED [None]
  - PALLOR [None]
  - PRURITUS [None]
  - SUFFOCATION FEELING [None]
  - TACHYCARDIA [None]
